FAERS Safety Report 7018548-2 (Version None)
Quarter: 2010Q3

REPORT INFORMATION
  Report Type: 
  Country: None (occurrence: None)
  Receive Date: 20100928
  Receipt Date: 20100923
  Transmission Date: 20110219
  Serious: Yes (Death, Hospitalization, Other)
  Sender: FDA-Public Use
  Company Number: US-ABBOTT-10P-163-0672634-00

PATIENT
  Sex: Male
  Weight: 123.49 kg

DRUGS (8)
  1. ZEMPLAR [Suspect]
     Indication: PRODUCT USED FOR UNKNOWN INDICATION
     Dates: end: 20091105
  2. LISINOPRIL [Concomitant]
     Indication: HYPERTENSION
     Dates: end: 20091205
  3. LASIX [Concomitant]
     Indication: HYPERTENSION
     Dates: end: 20091205
  4. CLONIDINE HCL [Concomitant]
     Indication: HYPERTENSION
     Route: 062
     Dates: end: 20091205
  5. LANTUS [Concomitant]
     Indication: DIABETES MELLITUS
     Dates: end: 20091205
  6. UNKNOWN INSULIN [Concomitant]
     Indication: DIABETES MELLITUS
     Dates: end: 20091205
  7. GLYBURIDE [Concomitant]
     Indication: DIABETES MELLITUS
     Dates: end: 20091205
  8. ASPIRIN [Concomitant]
     Indication: PRODUCT USED FOR UNKNOWN INDICATION
     Dates: end: 20091205

REACTIONS (23)
  - BLOOD CREATININE INCREASED [None]
  - BLOOD UREA INCREASED [None]
  - CARDIAC ARREST [None]
  - CARDIO-RESPIRATORY ARREST [None]
  - CEREBROVASCULAR ACCIDENT [None]
  - CONFUSIONAL STATE [None]
  - DIABETIC COMA [None]
  - DYSPNOEA [None]
  - HAEMATOCRIT DECREASED [None]
  - HAEMODIALYSIS-INDUCED SYMPTOM [None]
  - HAEMOGLOBIN DECREASED [None]
  - HAEMORRHAGE [None]
  - HYPOTENSION [None]
  - INTESTINAL POLYP [None]
  - MYOCARDIAL INFARCTION [None]
  - OCULOCEPHALOGYRIC REFLEX ABSENT [None]
  - PNEUMONIA [None]
  - RENAL FAILURE [None]
  - SEPTIC SHOCK [None]
  - SKIN ULCER [None]
  - TACHYCARDIA [None]
  - UNRESPONSIVE TO STIMULI [None]
  - WEIGHT INCREASED [None]
